FAERS Safety Report 8859306 (Version 1)
Quarter: 2012Q4

REPORT INFORMATION
  Report Type: 
  Country: US (occurrence: US)
  Receive Date: 20121024
  Receipt Date: 20121024
  Transmission Date: 20130627
  Serious: No
  Sender: FDA-Public Use
  Company Number: US-ASTRAZENECA-2012SE18741

PATIENT
  Age: 85 Year
  Sex: Male
  Weight: 65.8 kg

DRUGS (4)
  1. TOPROL XL [Suspect]
     Indication: CARDIAC FAILURE
     Route: 048
  2. TOPROL XL [Suspect]
     Indication: CARDIAC FAILURE
     Route: 048
  3. PANTOPRAZOLE [Concomitant]
  4. VITAMINS [Concomitant]

REACTIONS (3)
  - Blood pressure increased [Unknown]
  - Insomnia [Unknown]
  - Inappropriate schedule of drug administration [Unknown]
